FAERS Safety Report 5122715-2 (Version None)
Quarter: 2006Q4

REPORT INFORMATION
  Report Type: 
  Country: None (occurrence: None)
  Receive Date: 20061004
  Receipt Date: 20060919
  Transmission Date: 20070319
  Serious: Yes (Other)
  Sender: FDA-Public Use
  Company Number: S06-SWI-03122-01

PATIENT
  Age: 56 Year
  Sex: Female

DRUGS (10)
  1. CIPRALEX (ESCITALOPRAM) [Suspect]
     Indication: DEPRESSION
     Dosage: 20 MG QD PO
     Route: 048
     Dates: start: 20060609, end: 20060627
  2. CIPRALEX (ESCITALOPRAM) [Suspect]
     Indication: PANIC ATTACK
     Dosage: 20 MG QD PO
     Route: 048
     Dates: start: 20060609, end: 20060627
  3. CIPRALEX (ESCITALOPRAM) [Suspect]
     Indication: DEPRESSION
     Dosage: 10 MG QD PO
     Route: 048
     Dates: start: 20060627
  4. CIPRALEX (ESCITALOPRAM) [Suspect]
     Indication: PANIC ATTACK
     Dosage: 10 MG QD PO
     Route: 048
     Dates: start: 20060627
  5. REMERON [Suspect]
     Indication: DEPRESSION
     Dosage: 45 MG QD
     Dates: end: 20060703
  6. REMERON [Suspect]
     Indication: PANIC ATTACK
     Dosage: 45 MG QD
     Dates: end: 20060703
  7. REMERON [Suspect]
     Indication: DEPRESSION
     Dosage: 22.5 MG QD
     Dates: start: 20060704
  8. REMERON [Suspect]
     Indication: PANIC ATTACK
     Dosage: 22.5 MG QD
     Dates: start: 20060704
  9. LORAZEPAM [Concomitant]
  10. TRAZODONE HCL [Concomitant]

REACTIONS (2)
  - DRUG INTERACTION [None]
  - SEROTONIN SYNDROME [None]
